FAERS Safety Report 21305256 (Version 1)
Quarter: 2022Q3

REPORT INFORMATION
  Report Type: Spontaneous
  Country: US (occurrence: None)
  Receive Date: 20220907
  Receipt Date: 20220907
  Transmission Date: 20221026
  Serious: No
  Sender: FDA-Public Use
  Company Number: None

PATIENT
  Sex: Male

DRUGS (1)
  1. LAPATINIB [Suspect]
     Active Substance: LAPATINIB
     Indication: Rectal cancer
     Dosage: FREQUENCY : DAILY;?
     Route: 048
     Dates: start: 20220609

REACTIONS (2)
  - Infection [None]
  - Therapy interrupted [None]
